FAERS Safety Report 7536787-9 (Version None)
Quarter: 2011Q2

REPORT INFORMATION
  Report Type: 
  Country: None (occurrence: None)
  Receive Date: 20110609
  Receipt Date: 20110531
  Transmission Date: 20111010
  Serious: Yes (Other)
  Sender: FDA-Public Use
  Company Number: BF-ROCHE-776352

PATIENT

DRUGS (2)
  1. RIBAVIRIN [Suspect]
     Dosage: DOSE 1000 MG/DAY OR 1200 MG/DAY.  FOR GENOTYPE 2 DOSE WAS 800 MG/DAY.
     Route: 048
  2. PEGINTERFERON ALFA-2A [Suspect]
     Route: 058

REACTIONS (11)
  - DEPRESSION [None]
  - ANXIETY [None]
  - INSOMNIA [None]
  - LICHEN PLANUS [None]
  - ANAEMIA [None]
  - PANIC ATTACK [None]
  - THROMBOCYTOPENIA [None]
  - INFLUENZA LIKE ILLNESS [None]
  - UVEITIS [None]
  - NEUTROPENIA [None]
  - IRRITABILITY [None]
